FAERS Safety Report 21546549 (Version 2)
Quarter: 2022Q4

REPORT INFORMATION
  Report Type: Spontaneous
  Country: IT (occurrence: IT)
  Receive Date: 20221103
  Receipt Date: 20221111
  Transmission Date: 20230113
  Serious: Yes (Hospitalization, Other)
  Sender: FDA-Public Use
  Company Number: None

PATIENT
  Age: 77 Year
  Sex: Male
  Weight: 73 kg

DRUGS (3)
  1. IMBRUVICA [Suspect]
     Active Substance: IBRUTINIB
     Indication: Product used for unknown indication
     Dosage: IMBRUVICA 420 MG/DIE
     Route: 048
  2. LACIDIPINE DCI [Concomitant]
     Indication: Hypertension
     Dosage: LACIDIPINA 1 CP
     Route: 048
     Dates: start: 2019
  3. METFORMIN HYDROCHLORIDE [Concomitant]
     Active Substance: METFORMIN HYDROCHLORIDE
     Indication: Diabetes mellitus
     Dosage: METFORMINA 500MG X 2
     Route: 065

REACTIONS (3)
  - Pleural effusion [Unknown]
  - Atrial fibrillation [Recovering/Resolving]
  - Pericarditis [Recovering/Resolving]

NARRATIVE: CASE EVENT DATE: 20220928
